FAERS Safety Report 11088651 (Version 2)
Quarter: 2015Q3

REPORT INFORMATION
  Report Type: Spontaneous
  Country: US (occurrence: US)
  Receive Date: 20150504
  Receipt Date: 20150811
  Transmission Date: 20151125
  Serious: Yes (Other)
  Sender: FDA-Public Use
  Company Number: US-ACTELION-A-US2015-117175

PATIENT
  Age: 23 Year
  Sex: Female

DRUGS (4)
  1. OPSUMIT [Suspect]
     Active Substance: MACITENTAN
     Indication: PULMONARY ARTERIAL HYPERTENSION
     Dosage: 10 MG, QD
     Route: 048
     Dates: start: 20131127
  2. FLOLAN [Suspect]
     Active Substance: EPOPROSTENOL SODIUM
     Dosage: 34.5 NG/KG, PER MIN
     Route: 042
  3. ADCIRCA [Concomitant]
     Active Substance: TADALAFIL
  4. FLOLAN [Suspect]
     Active Substance: EPOPROSTENOL SODIUM
     Indication: PULMONARY ARTERIAL HYPERTENSION
     Dosage: 32 NG/KG, UNK
     Route: 042

REACTIONS (20)
  - Pyrexia [Unknown]
  - Nasal congestion [Unknown]
  - Central venous catheterisation [Unknown]
  - Headache [Unknown]
  - Catheter site infection [Unknown]
  - Rash pruritic [Not Recovered/Not Resolved]
  - Arthralgia [Unknown]
  - Catheter site rash [Not Recovered/Not Resolved]
  - Medical device complication [Unknown]
  - Catheter site pain [Unknown]
  - Catheter site related reaction [Unknown]
  - Device alarm issue [Unknown]
  - Pain [Unknown]
  - Multiple allergies [Unknown]
  - Cough [Unknown]
  - Nasopharyngitis [Unknown]
  - Pruritus [Unknown]
  - Weight decreased [Unknown]
  - Fatigue [Unknown]
  - Rhinorrhoea [Unknown]

NARRATIVE: CASE EVENT DATE: 20140415
